FAERS Safety Report 7912273-9 (Version None)
Quarter: 2011Q4

REPORT INFORMATION
  Report Type: 
  Country: None (occurrence: None)
  Receive Date: 20111114
  Receipt Date: 20111025
  Transmission Date: 20120403
  Serious: Yes (Other)
  Sender: FDA-Public Use
  Company Number: BR-MERCK-1110BRA00101

PATIENT
  Age: 53 Year
  Sex: Male
  Weight: 107 kg

DRUGS (6)
  1. AMLODIPINE BESYLATE AND VALSARTAN [Concomitant]
     Route: 065
     Dates: start: 20110712
  2. HYDROCHLOROTHIAZIDE [Concomitant]
     Route: 065
     Dates: start: 20110527
  3. VYTORIN [Suspect]
     Route: 065
     Dates: start: 20110527
  4. AMLODIPINE BESYLATE AND VALSARTAN [Concomitant]
     Route: 065
     Dates: start: 20110527, end: 20110712
  5. METFORMIN HYDROCHLORIDE [Concomitant]
     Route: 065
     Dates: start: 20110527
  6. ASPIRIN [Concomitant]
     Route: 065
     Dates: start: 20110527

REACTIONS (6)
  - LEFT VENTRICULAR DYSFUNCTION [None]
  - RENAL CANCER [None]
  - EXERCISE TEST ABNORMAL [None]
  - HEPATIC STEATOSIS [None]
  - WEIGHT DECREASED [None]
  - VENTRICULAR HYPERTROPHY [None]
